FAERS Safety Report 22167400 (Version 1)
Quarter: 2023Q2

REPORT INFORMATION
  Report Type: Report from Study
  Country: CA (occurrence: CA)
  Receive Date: 20230403
  Receipt Date: 20230403
  Transmission Date: 20230722
  Serious: Yes (Hospitalization)
  Sender: FDA-Public Use
  Company Number: CA-HLS-202300430

PATIENT
  Age: 23 Year
  Sex: Male
  Weight: 79 kg

DRUGS (1)
  1. CLOZARIL [Suspect]
     Active Substance: CLOZAPINE
     Indication: Product used for unknown indication
     Dosage: UNKNOWN
     Route: 048
     Dates: start: 20220411, end: 20230122

REACTIONS (2)
  - Therapy interrupted [Unknown]
  - Anosognosia [Unknown]

NARRATIVE: CASE EVENT DATE: 20230122
